FAERS Safety Report 21341551 (Version 1)
Quarter: 2022Q3

REPORT INFORMATION
  Report Type: Spontaneous
  Country: CA (occurrence: None)
  Receive Date: 20220916
  Receipt Date: 20220916
  Transmission Date: 20221027
  Serious: Yes (Other)
  Sender: FDA-Public Use
  Company Number: CA-ROCHE-3177193

PATIENT
  Age: 42 Year
  Sex: Male
  Weight: 50 kg

DRUGS (10)
  1. CELLCEPT [Suspect]
     Active Substance: MYCOPHENOLATE MOFETIL
     Indication: Product used for unknown indication
     Route: 065
  2. CELLCEPT [Suspect]
     Active Substance: MYCOPHENOLATE MOFETIL
     Route: 065
     Dates: start: 20220707
  3. SOLIRIS [Suspect]
     Active Substance: ECULIZUMAB
     Indication: Atypical haemolytic uraemic syndrome
     Dosage: STRENGTH: 10MG/ML
     Route: 042
     Dates: start: 20170120, end: 20170216
  4. PREDNISONE [Concomitant]
     Active Substance: PREDNISONE
     Route: 065
  5. ATACAND [Concomitant]
     Active Substance: CANDESARTAN CILEXETIL
  6. ADALAT [Concomitant]
     Active Substance: NIFEDIPINE
  7. INDAPAMIDE [Concomitant]
     Active Substance: INDAPAMIDE
  8. LASIX [Concomitant]
     Active Substance: FUROSEMIDE
  9. DOXAZOSIN [Concomitant]
     Active Substance: DOXAZOSIN MESYLATE
  10. BISOPROLOL [Concomitant]
     Active Substance: BISOPROLOL

REACTIONS (18)
  - Melaena [Recovered/Resolved]
  - Faeces soft [Recovered/Resolved]
  - Abdominal distension [Recovered/Resolved]
  - Haematochezia [Recovered/Resolved]
  - Complications of transplanted kidney [Not Recovered/Not Resolved]
  - Endoscopy upper gastrointestinal tract abnormal [Unknown]
  - Malaise [Unknown]
  - Pallor [Unknown]
  - Dyslipidaemia [Unknown]
  - Metabolic acidosis [Recovering/Resolving]
  - Blood pressure decreased [Unknown]
  - Decreased appetite [Unknown]
  - Anaemia [Unknown]
  - Dizziness [Unknown]
  - Hypertension [Unknown]
  - Laboratory test abnormal [Not Recovered/Not Resolved]
  - Weight decreased [Recovering/Resolving]
  - Hyperuricaemia [Recovering/Resolving]
